FAERS Safety Report 9692978 (Version 1)
Quarter: 2013Q4

REPORT INFORMATION
  Report Type: Spontaneous
  Country: US (occurrence: US)
  Receive Date: 20131118
  Receipt Date: 20131118
  Transmission Date: 20140711
  Serious: Yes (Hospitalization)
  Sender: FDA-Public Use
  Company Number: US-ROXANE LABORATORIES, INC.-2013-RO-01820RO

PATIENT
  Age: 35 Month
  Sex: Female

DRUGS (2)
  1. FLECAINIDE [Suspect]
     Indication: SUPRAVENTRICULAR TACHYCARDIA
  2. PROPRANOLOL [Concomitant]
     Indication: SUPRAVENTRICULAR TACHYCARDIA

REACTIONS (1)
  - Toxicity to various agents [Recovered/Resolved]
